FAERS Safety Report 5764878-1 (Version None)
Quarter: 2008Q2

REPORT INFORMATION
  Report Type: 
  Country: None (occurrence: None)
  Receive Date: 20080611
  Receipt Date: 20080602
  Transmission Date: 20081010
  Serious: Yes (Other)
  Sender: FDA-Public Use
  Company Number: ES-AVENTIS-200812615EU

PATIENT
  Age: 36 Year
  Sex: Female

DRUGS (3)
  1. CLEXANE [Suspect]
     Indication: THROMBOPHLEBITIS
     Route: 058
     Dates: start: 20080506, end: 20080528
  2. VOLTAREN [Concomitant]
     Indication: PHLEBITIS
  3. HIBOR [Concomitant]

REACTIONS (3)
  - ANGIOEDEMA [None]
  - DERMATITIS ALLERGIC [None]
  - URTICARIA [None]
